FAERS Safety Report 16038131 (Version 1)
Quarter: 2019Q1

REPORT INFORMATION
  Report Type: Spontaneous
  Country: JP (occurrence: JP)
  Receive Date: 20190305
  Receipt Date: 20190305
  Transmission Date: 20190418
  Serious: Yes (Life-Threatening, Hospitalization, Other)
  Sender: FDA-Public Use
  Company Number: JP-REGENERON PHARMACEUTICALS, INC.-2019-16218

PATIENT

DRUGS (10)
  1. EYLEA [Suspect]
     Active Substance: AFLIBERCEPT
     Dosage: 0.05 MG, ONCE, RIGHT EYE
     Route: 031
     Dates: start: 20180327, end: 20180327
  2. EYLEA [Suspect]
     Active Substance: AFLIBERCEPT
     Dosage: 0.05 ML, ONCE, RIGHT EYE
     Route: 031
     Dates: start: 20170404, end: 20170404
  3. EYLEA [Suspect]
     Active Substance: AFLIBERCEPT
     Dosage: 0.05 ML, ONCE, RIGHT EYE
     Route: 031
     Dates: start: 20171219, end: 20171219
  4. EYLEA [Suspect]
     Active Substance: AFLIBERCEPT
     Dosage: 0.05 ML, ONCE, RIGHT EYE
     Route: 031
     Dates: start: 20170207, end: 20170207
  5. EYLEA [Suspect]
     Active Substance: AFLIBERCEPT
     Dosage: 0.05 ML, ONCE, RIGHT EYE
     Route: 031
     Dates: start: 20180710, end: 20180710
  6. EYLEA [Suspect]
     Active Substance: AFLIBERCEPT
     Dosage: 0.05 ML, ONCE, RIGHT EYE
     Route: 031
     Dates: start: 20170110, end: 20170110
  7. EYLEA [Suspect]
     Active Substance: AFLIBERCEPT
     Dosage: 0.05 ML, ONCE, RIGHT EYE
     Route: 031
     Dates: start: 20170613, end: 20170613
  8. EYLEA [Suspect]
     Active Substance: AFLIBERCEPT
     Dosage: 0.05 ML, ONCE, RIGHT EYE
     Route: 031
     Dates: start: 20170822, end: 20170822
  9. EYLEA [Suspect]
     Active Substance: AFLIBERCEPT
     Dosage: 0.05 ML, ONCE
     Route: 031
     Dates: start: 20181113, end: 20181113
  10. EYLEA [Suspect]
     Active Substance: AFLIBERCEPT
     Indication: AGE-RELATED MACULAR DEGENERATION
     Dosage: 0.05 ML, ONCE, RIGHT EYE
     Route: 031
     Dates: start: 20161213, end: 20161213

REACTIONS (2)
  - Angina unstable [Recovered/Resolved]
  - Myocardial infarction [Recovered/Resolved]

NARRATIVE: CASE EVENT DATE: 201812
